FAERS Safety Report 22058273 (Version 2)
Quarter: 2025Q2

REPORT INFORMATION
  Report Type: Spontaneous
  Country: AU (occurrence: AU)
  Receive Date: 20230303
  Receipt Date: 20250620
  Transmission Date: 20250716
  Serious: Yes (Other)
  Sender: ORGANON
  Company Number: AU-ORGANON-O2302AUS002226

PATIENT
  Age: 71 Year
  Sex: Female

DRUGS (12)
  1. DIPROSONE [Suspect]
     Active Substance: BETAMETHASONE DIPROPIONATE
  2. ATORVASTATIN [Suspect]
     Active Substance: ATORVASTATIN
  3. ENSTILAR [Suspect]
     Active Substance: BETAMETHASONE DIPROPIONATE\CALCIPOTRIENE HYDRATE
  4. METOPROLOL TARTRATE [Suspect]
     Active Substance: METOPROLOL TARTRATE
  5. SULFASALAZINE [Suspect]
     Active Substance: SULFASALAZINE
  6. CYCLOSPORINE [Suspect]
     Active Substance: CYCLOSPORINE
  7. ASPIRIN [Suspect]
     Active Substance: ASPIRIN
  8. CALCITRIOL [Suspect]
     Active Substance: CALCITRIOL
  9. FOLIC ACID [Suspect]
     Active Substance: FOLIC ACID
  10. LEFLUNOMIDE [Suspect]
     Active Substance: LEFLUNOMIDE
  11. METHOTREXATE [Suspect]
     Active Substance: METHOTREXATE
  12. OMEPRAZOLE [Suspect]
     Active Substance: OMEPRAZOLE

REACTIONS (6)
  - Pancytopenia [Unknown]
  - Bone marrow disorder [Unknown]
  - Nail psoriasis [Unknown]
  - Oligoarthritis [Unknown]
  - Psoriasis [Unknown]
  - Synovitis [Unknown]
